FAERS Safety Report 6182579-5 (Version None)
Quarter: 2009Q2

REPORT INFORMATION
  Report Type: 
  Country: None (occurrence: None)
  Receive Date: 20090507
  Receipt Date: 20090427
  Transmission Date: 20091009
  Serious: Yes (Hospitalization)
  Sender: FDA-Public Use
  Company Number: US-ELI_LILLY_AND_COMPANY-US200904006623

PATIENT
  Age: 59 Year
  Sex: Male
  Weight: 107.94 kg

DRUGS (9)
  1. CIALIS [Suspect]
     Indication: ERECTILE DYSFUNCTION
     Dosage: 10 MG, UNKNOWN
     Route: 048
     Dates: start: 20090225
  2. BYSTOLIC [Concomitant]
     Indication: HYPERTENSION
     Dosage: 10 MG, 2/D
     Route: 048
     Dates: start: 20090225
  3. AVAPRO [Concomitant]
     Dosage: 300 MG, UNKNOWN
     Route: 065
  4. CARDURA [Concomitant]
     Dosage: 4 MG, UNKNOWN
     Route: 065
  5. TRICOR [Concomitant]
     Dosage: 145 MG, UNKNOWN
     Route: 065
  6. LIPITOR [Concomitant]
     Dosage: UNK, UNKNOWN
     Route: 065
  7. LOVAZA [Concomitant]
     Dosage: 1 G, 2/D
     Route: 065
  8. REPAGLINIDE [Concomitant]
     Dosage: 0.5 MG, 2/D
     Route: 065
  9. ACIPHEX [Concomitant]
     Dosage: 20 MG, UNKNOWN
     Route: 065

REACTIONS (2)
  - ACUTE PULMONARY OEDEMA [None]
  - DRUG INTERACTION [None]
